FAERS Safety Report 8352593-X (Version None)
Quarter: 2012Q2

REPORT INFORMATION
  Report Type: 
  Country: None (occurrence: None)
  Receive Date: 20120511
  Receipt Date: 20120430
  Transmission Date: 20120825
  Serious: No
  Sender: FDA-Public Use
  Company Number: US-COVIDIEN/TYCO HEALTHCARE/MALLINCKRODT-T201201600

PATIENT
  Sex: Male

DRUGS (1)
  1. FENTANYL-100 [Suspect]
     Dosage: 25 UG/HR, UNK
     Dates: start: 20120101

REACTIONS (1)
  - DRUG EFFECT INCREASED [None]
